FAERS Safety Report 5850498-7 (Version None)
Quarter: 2008Q3

REPORT INFORMATION
  Report Type: 
  Country: None (occurrence: None)
  Receive Date: 20080818
  Receipt Date: 20080813
  Transmission Date: 20090109
  Serious: Yes (Other)
  Sender: FDA-Public Use
  Company Number: A0742580A

PATIENT
  Age: 50 Year
  Sex: Female

DRUGS (1)
  1. GAVISCON [Suspect]
     Indication: GASTROOESOPHAGEAL REFLUX DISEASE
     Dosage: UNK/UNK/ORAL
     Route: 048

REACTIONS (3)
  - HEPATIC ENZYME INCREASED [None]
  - INTENTIONAL DRUG MISUSE [None]
  - LIVER DISORDER [None]
